FAERS Safety Report 7249966-5 (Version None)
Quarter: 2011Q1

REPORT INFORMATION
  Report Type: 
  Country: None (occurrence: None)
  Receive Date: 20110128
  Receipt Date: 20101115
  Transmission Date: 20110831
  Serious: No
  Sender: FDA-Public Use
  Company Number: A0892565A

PATIENT
  Sex: Female

DRUGS (5)
  1. BUPROPION HYDROCHLORIDE [Suspect]
     Indication: DEPRESSION
     Dosage: 1TAB TWICE PER DAY
     Route: 048
     Dates: end: 20090101
  2. PREMARIN [Concomitant]
  3. NEBULIZER [Concomitant]
  4. ADVAIR [Concomitant]
  5. PROVENTIL [Concomitant]

REACTIONS (2)
  - EX-TOBACCO USER [None]
  - NICOTINE DEPENDENCE [None]
